FAERS Safety Report 15643419 (Version 1)
Quarter: 2018Q4

REPORT INFORMATION
  Report Type: Spontaneous
  Country: ES (occurrence: ES)
  Receive Date: 20181121
  Receipt Date: 20181121
  Transmission Date: 20190205
  Serious: Yes (Hospitalization)
  Sender: FDA-Public Use
  Company Number: PHHY2018ES159575

PATIENT
  Age: 80 Year
  Sex: Male

DRUGS (9)
  1. TRAMADOL. [Concomitant]
     Active Substance: TRAMADOL
     Indication: OSTEOARTHRITIS
     Dosage: 1 ?G/L, Q8H
     Route: 048
     Dates: start: 20130129
  2. LEVOFLOXACIN. [Suspect]
     Active Substance: LEVOFLOXACIN
     Indication: RESPIRATORY TRACT INFECTION
     Dosage: 500 MG, Q8H
     Route: 042
     Dates: start: 20180714, end: 20180716
  3. LANTUS [Concomitant]
     Active Substance: INSULIN GLARGINE
     Indication: DIABETES MELLITUS
     Dosage: 24 IU, Q18H
     Route: 058
     Dates: start: 20120525
  4. LEVETIRACETAM. [Concomitant]
     Active Substance: LEVETIRACETAM
     Indication: EPILEPSY
     Dosage: 1 ?G/L, Q12H
     Route: 048
     Dates: start: 20150428
  5. DUTASTERIDE;TAMSULOSIN [Concomitant]
     Indication: BENIGN PROSTATIC HYPERPLASIA
     Dosage: 1 ?G/L, QD
     Route: 048
     Dates: start: 20110209
  6. FUROSEMIDA [Concomitant]
     Active Substance: FUROSEMIDE
     Indication: CARDIAC FAILURE
     Dosage: 1 ?G/L, Q12H
     Route: 048
     Dates: start: 20150429
  7. RISPERIDONA [Concomitant]
     Active Substance: RISPERIDONE
     Indication: VASCULAR DEMENTIA
     Dosage: 0.5 MG, QD
     Dates: start: 20161215
  8. LOSARTAN. [Concomitant]
     Active Substance: LOSARTAN
     Indication: ESSENTIAL HYPERTENSION
     Dosage: 1 ?G/L, QD
     Route: 048
     Dates: start: 20180120
  9. ENUREV [Concomitant]
     Active Substance: GLYCOPYRROLATE
     Indication: BRONCHITIS CHRONIC
     Dosage: 1 ?G/L, QD
     Route: 055
     Dates: start: 20150113

REACTIONS (2)
  - Hypersensitivity [Recovered/Resolved]
  - Infusion site phlebitis [Recovered/Resolved]

NARRATIVE: CASE EVENT DATE: 20180716
